FAERS Safety Report 9374754 (Version 1)
Quarter: 2013Q2

REPORT INFORMATION
  Report Type: Spontaneous
  Country: CA (occurrence: CA)
  Receive Date: 20130628
  Receipt Date: 20130628
  Transmission Date: 20140414
  Serious: Yes (Other)
  Sender: FDA-Public Use
  Company Number: CA-JNJFOC-20130618198

PATIENT
  Age: 49 Year
  Sex: Female
  Weight: 68.04 kg

DRUGS (4)
  1. REACTINE ALLERGY + SINUS [Suspect]
     Route: 048
  2. REACTINE ALLERGY + SINUS [Suspect]
     Indication: MULTIPLE ALLERGIES
     Route: 048
     Dates: start: 20130616, end: 20130617
  3. ADVIL [Concomitant]
     Indication: PAIN
     Route: 065
  4. IMOVANE [Concomitant]
     Indication: HYPERSOMNIA
     Route: 065

REACTIONS (1)
  - Anaphylactic shock [Recovered/Resolved]
